FAERS Safety Report 22914578 (Version 3)
Quarter: 2025Q3

REPORT INFORMATION
  Report Type: Spontaneous
  Country: JP (occurrence: JP)
  Receive Date: 20230907
  Receipt Date: 20250707
  Transmission Date: 20251020
  Serious: Yes (Other)
  Sender: ASTELLAS
  Company Number: JP-ASTELLAS-2023JP010284

PATIENT
  Age: 87 Year
  Sex: Male

DRUGS (6)
  1. XTANDI [Suspect]
     Active Substance: ENZALUTAMIDE
     Indication: Prostate cancer
     Dosage: TOOK IT IN THE MORNING
     Route: 048
  2. XTANDI [Suspect]
     Active Substance: ENZALUTAMIDE
     Dosage: TOOK IT IN THE MORNING
     Route: 048
  3. XTANDI [Suspect]
     Active Substance: ENZALUTAMIDE
     Dosage: TOOK IT IN THE MORNING
     Route: 048
  4. NUBEQA [Suspect]
     Active Substance: DAROLUTAMIDE
     Indication: Prostate cancer
     Dosage: TOOK IT IN THE MORNING AND EVENING
     Route: 048
  5. LEUPLIN [Concomitant]
     Active Substance: LEUPROLIDE ACETATE
     Indication: Product used for unknown indication
     Route: 065
  6. ERLEADA [Concomitant]
     Active Substance: APALUTAMIDE
     Indication: Product used for unknown indication
     Route: 065

REACTIONS (6)
  - Colon cancer [Unknown]
  - Large intestinal haemorrhage [Unknown]
  - Prostatic specific antigen increased [Not Recovered/Not Resolved]
  - Feeling abnormal [Unknown]
  - Therapeutic response decreased [Unknown]
  - Underdose [Unknown]

NARRATIVE: CASE EVENT DATE: 20220101
